FAERS Safety Report 5940996-X (Version None)
Quarter: 2008Q4

REPORT INFORMATION
  Report Type: 
  Country: None (occurrence: None)
  Receive Date: 20081104
  Receipt Date: 20081030
  Transmission Date: 20090506
  Serious: Yes (Death, Other)
  Sender: FDA-Public Use
  Company Number: PHHY2008BR14892

PATIENT
  Sex: Male
  Weight: 88.2 kg

DRUGS (42)
  1. SANDIMMUNE [Suspect]
     Indication: PROPHYLAXIS AGAINST GRAFT VERSUS HOST DISEASE
     Dosage: 80 MG, Q12H
     Route: 042
     Dates: start: 20080415, end: 20080523
  2. SANDIMMUNE [Suspect]
     Indication: BONE MARROW TRANSPLANT
  3. VFEND [Suspect]
  4. ACYCLOVIR [Concomitant]
  5. URSODIOL [Concomitant]
  6. AMLODIPINE [Concomitant]
  7. ZOLBEN [Concomitant]
  8. ZYLORIC [Concomitant]
  9. AMIKACIN [Concomitant]
  10. ATGAM [Concomitant]
  11. DIGESAN [Concomitant]
  12. CAPOTEN [Concomitant]
  13. MAXCEF [Concomitant]
  14. CYCLOPHOSPHAMIDE [Concomitant]
  15. CIPRO [Concomitant]
  16. DEXAMETHASONE 0.5MG TAB [Concomitant]
  17. VALIUM [Concomitant]
  18. LUFTAL [Concomitant]
  19. DIPYRONE TAB [Concomitant]
  20. FENTANYL [Concomitant]
  21. NEUPOGEN [Concomitant]
  22. ZOLTEC [Concomitant]
  23. LEUCOVORIN CALCIUM [Concomitant]
  24. LASIX [Concomitant]
  25. SOLU-CORTEF [Concomitant]
  26. IMMUNE GLOBULIN NOS [Concomitant]
  27. INSULIN [Concomitant]
  28. MERONEM [Concomitant]
  29. SOLU-MEDROL [Concomitant]
  30. PLASIL [Concomitant]
  31. DORMONID [Concomitant]
  32. MORPHINE [Concomitant]
  33. NORADRENALINE [Concomitant]
  34. OMEPRAZOLE [Concomitant]
  35. ZOFRAN [Concomitant]
  36. TYLENOL [Concomitant]
  37. FENERGAN [Concomitant]
  38. VANCOMYCIN HYDROCHLORIDE [Concomitant]
  39. ABELCET [Concomitant]
  40. ADRENALINE [Concomitant]
  41. DOBUTAMINE HCL [Concomitant]
  42. PIPERACILLIN SODIUM AND TAZOBACTAM SODIUM [Suspect]

REACTIONS (17)
  - AGITATION [None]
  - ANXIETY [None]
  - COMA [None]
  - GRAFT VERSUS HOST DISEASE [None]
  - HYPOACUSIS [None]
  - INFLAMMATION [None]
  - MECHANICAL VENTILATION [None]
  - NEUROTOXICITY [None]
  - NUCLEAR MAGNETIC RESONANCE IMAGING ABNORMAL [None]
  - PARAESTHESIA [None]
  - PRODUCT QUALITY ISSUE [None]
  - RESPIRATORY FAILURE [None]
  - RETINAL VASCULITIS [None]
  - SOMNOLENCE [None]
  - TACHYCARDIA [None]
  - VERTIGO [None]
  - VISION BLURRED [None]
